FAERS Safety Report 22127393 (Version 2)
Quarter: 2023Q2

REPORT INFORMATION
  Report Type: Spontaneous
  Country: JP (occurrence: JP)
  Receive Date: 20230322
  Receipt Date: 20230509
  Transmission Date: 20230722
  Serious: Yes (Death, Hospitalization, Other)
  Sender: FDA-Public Use
  Company Number: JP-KYOWAKIRIN-2023AKK002688

PATIENT
  Age: 75 Year
  Sex: Female

DRUGS (10)
  1. PEGFILGRASTIM [Suspect]
     Active Substance: PEGFILGRASTIM
     Indication: Product used for unknown indication
     Dosage: 3.6 MILLIGRAM, Q4WK
     Route: 058
     Dates: start: 20220401, end: 20230210
  2. AMRUBICIN HYDROCHLORIDE [Concomitant]
     Active Substance: AMRUBICIN HYDROCHLORIDE
     Indication: Small cell lung cancer
     Dosage: 45 MG, 3X/4 WEEKS
     Route: 042
     Dates: start: 20220330, end: 20220907
  3. AMRUBICIN HYDROCHLORIDE [Concomitant]
     Active Substance: AMRUBICIN HYDROCHLORIDE
     Dosage: 40 MILLIGRAM, QWK
     Route: 042
     Dates: start: 20221006, end: 20230209
  4. DEXAMETHASONE SODIUM PHOSPHATE [Concomitant]
     Active Substance: DEXAMETHASONE SODIUM PHOSPHATE
     Indication: Small cell lung cancer
     Dosage: 6.6 MILLIGRAM, QWK
     Route: 042
     Dates: start: 20220330, end: 20220907
  5. DEXTROMETHORPHAN HYDROBROMIDE\LYSOZYME HYDROCHLORIDE\POTASSIUM CRESOLS [Concomitant]
     Active Substance: DEXTROMETHORPHAN HYDROBROMIDE\LYSOZYME HYDROCHLORIDE\POTASSIUM CRESOLSULFONATE
     Indication: Small cell lung cancer
     Dosage: 15 MILLIGRAM, TID
     Route: 048
     Dates: start: 20220510, end: 20230221
  6. DESLORATADINE [Concomitant]
     Active Substance: DESLORATADINE
     Indication: Rhinitis allergic
     Dosage: 5 MILLIGRAM, QD
     Route: 048
     Dates: start: 20220420, end: 20221123
  7. CARBAZOCHROME [Concomitant]
     Active Substance: CARBAZOCHROME
     Indication: Haemoptysis
     Dosage: 30 MILLIGRAM, TID
     Route: 048
     Dates: start: 20220325, end: 20230314
  8. TRANSAMIN [Concomitant]
     Active Substance: TRANEXAMIC ACID
     Indication: Haemoptysis
     Dosage: 250 MILLIGRAM, TID
     Route: 048
     Dates: start: 20220325, end: 20220815
  9. ALPRAZOLAM [Concomitant]
     Active Substance: ALPRAZOLAM
     Indication: Depression
     Dosage: 0.4 MILLIGRAM, TID
     Route: 048
     Dates: start: 20210717, end: 20230314
  10. GRANISETRON [Concomitant]
     Active Substance: GRANISETRON
     Indication: Small cell lung cancer
     Dosage: 3 MILLIGRAM, QWK
     Route: 042
     Dates: start: 20220330, end: 20220907

REACTIONS (3)
  - Meningitis [Fatal]
  - Osteomyelitis [Fatal]
  - Bone pain [Fatal]

NARRATIVE: CASE EVENT DATE: 20230213
